FAERS Safety Report 9508645 (Version 2)
Quarter: 2013Q3

REPORT INFORMATION
  Report Type: Spontaneous
  Country: JP (occurrence: JP)
  Receive Date: 20130909
  Receipt Date: 20130919
  Transmission Date: 20140515
  Serious: Yes (Hospitalization, Other)
  Sender: FDA-Public Use
  Company Number: JP-PFIZER INC-2013255143

PATIENT
  Age: 80 Year
  Sex: Male

DRUGS (4)
  1. FLUOROURACIL [Suspect]
     Indication: COLON CANCER
     Dosage: 320 MG/M2, CYCLIC
     Route: 040
     Dates: start: 200811
  2. FLUOROURACIL [Suspect]
     Dosage: 1920 MG/M2, CYCLIC (46-HOUR CONTINUOUS DOSING)
     Dates: start: 200811
  3. LEUCOVORIN [Concomitant]
     Indication: COLON CANCER
     Dosage: 160 MG/M2, CYCLIC
     Dates: start: 200811
  4. IRINOTECAN [Concomitant]
     Indication: COLON CANCER
     Dosage: 120 MG/M2, CYCLIC
     Dates: start: 200811

REACTIONS (1)
  - Hyperammonaemic encephalopathy [Recovered/Resolved]
